FAERS Safety Report 23631826 (Version 1)
Quarter: 2024Q1

REPORT INFORMATION
  Report Type: Spontaneous
  Country: US (occurrence: US)
  Receive Date: 20240314
  Receipt Date: 20240314
  Transmission Date: 20240410
  Serious: Yes (Hospitalization, Other)
  Sender: FDA-Public Use
  Company Number: US-PFIZER INC-PV202400034261

PATIENT
  Age: 65 Year
  Sex: Female

DRUGS (2)
  1. BENDAMUSTINE HYDROCHLORIDE [Suspect]
     Active Substance: BENDAMUSTINE HYDROCHLORIDE
     Indication: Marginal zone lymphoma recurrent
     Dosage: 90 MG/M2, CYCLIC
     Dates: start: 20230923
  2. RITUXIMAB [Concomitant]
     Active Substance: RITUXIMAB
     Indication: Marginal zone lymphoma recurrent
     Dosage: UNK
     Dates: start: 20230923

REACTIONS (1)
  - Aplastic anaemia [Recovered/Resolved]
